FAERS Safety Report 19483510 (Version 3)
Quarter: 2021Q4

REPORT INFORMATION
  Report Type: Spontaneous
  Country: JP (occurrence: JP)
  Receive Date: 20210701
  Receipt Date: 20211213
  Transmission Date: 20220304
  Serious: Yes (Life-Threatening, Hospitalization, Other)
  Sender: FDA-Public Use
  Company Number: JP-PFIZER INC-2021712400

PATIENT
  Age: 94 Year
  Sex: Female

DRUGS (4)
  1. COMIRNATY [Suspect]
     Active Substance: TOZINAMERAN
     Indication: COVID-19 immunisation
     Dosage: DOSE 1, SINGLE
     Dates: start: 20210610, end: 20210610
  2. AMLODIPINE [Suspect]
     Active Substance: AMLODIPINE BESYLATE
     Indication: Hypertension
     Dosage: 1 TABLET, 1X/DAY IN THE MORNING
     Route: 048
     Dates: end: 20210702
  3. AMITIZA [Concomitant]
     Active Substance: LUBIPROSTONE
     Indication: Constipation
     Dosage: 2 CAPSULES, 2X/DAY IN THE MORNING AND EVENING
     Route: 048
     Dates: end: 20210702
  4. SODIUM FERROUS CITRATE [Concomitant]
     Active Substance: SODIUM FERROUS CITRATE
     Indication: Anaemia
     Dosage: 2 TABLET, 2X/DAY IN THE MORNING AND EVENING
     Route: 048
     Dates: end: 20210702

REACTIONS (20)
  - Anaphylactic shock [Recovered/Resolved]
  - Altered state of consciousness [Recovered/Resolved]
  - Loss of consciousness [Recovered/Resolved]
  - Yawning [Recovered/Resolved]
  - Musculoskeletal stiffness [Recovered/Resolved]
  - Foaming at mouth [Recovered/Resolved]
  - Radial pulse abnormal [Recovered/Resolved]
  - Depressed level of consciousness [Unknown]
  - Shock [Unknown]
  - Blood pressure immeasurable [Unknown]
  - Blood lactate dehydrogenase increased [Unknown]
  - Blood urea increased [Unknown]
  - Blood glucose increased [Unknown]
  - Red blood cell count decreased [Unknown]
  - Haemoglobin decreased [Unknown]
  - Mean cell haemoglobin concentration decreased [Unknown]
  - Lymphocyte percentage increased [Unknown]
  - Protein urine present [Unknown]
  - Pulse volume decreased [Unknown]
  - Blood pressure decreased [Unknown]

NARRATIVE: CASE EVENT DATE: 20210610
